FAERS Safety Report 5690946-9 (Version None)
Quarter: 2008Q2

REPORT INFORMATION
  Report Type: 
  Country: None (occurrence: None)
  Receive Date: 20080401
  Receipt Date: 20080321
  Transmission Date: 20081010
  Serious: Yes (Other)
  Sender: FDA-Public Use
  Company Number: US-ELI_LILLY_AND_COMPANY-US200803005306

PATIENT
  Sex: Female

DRUGS (11)
  1. BYETTA [Suspect]
     Dosage: 5 UG, 2/D
     Route: 058
     Dates: start: 20080317
  2. DIOVAN [Concomitant]
     Indication: HYPERTENSION
     Route: 048
  3. NITROGLYCERIN [Concomitant]
     Indication: CHEST PAIN
     Route: 062
  4. TIAZAC [Concomitant]
  5. POTASSIUM CHLORIDE [Concomitant]
  6. PROTONIX [Concomitant]
  7. LASIX [Concomitant]
     Route: 048
  8. AMARYL [Concomitant]
     Route: 048
  9. COUMADIN [Concomitant]
     Route: 048
  10. AMINO ACIDS [Concomitant]
  11. VITAMINS WITH MINERALS [Concomitant]
     Route: 048

REACTIONS (2)
  - FATIGUE [None]
  - HEART RATE IRREGULAR [None]
